FAERS Safety Report 9211675 (Version 3)
Quarter: 2013Q2

REPORT INFORMATION
  Report Type: Spontaneous
  Country: US (occurrence: US)
  Receive Date: 20130404
  Receipt Date: 20130618
  Transmission Date: 20140414
  Serious: Yes (Other)
  Sender: FDA-Public Use
  Company Number: US-AMGEN-USASP2013021008

PATIENT
  Age: 51 Year
  Sex: Male

DRUGS (7)
  1. ENBREL [Suspect]
     Indication: PSORIATIC ARTHROPATHY
     Dosage: 50 MG, QWK
     Route: 058
     Dates: start: 20130228, end: 20130325
  2. ENBREL [Suspect]
     Indication: PSORIASIS
  3. FISH OIL [Concomitant]
     Dosage: 1000 UNK, QD
     Route: 048
  4. FLAXSEED OIL [Concomitant]
     Dosage: UNK, QD
     Route: 048
  5. TRICOR                             /00090101/ [Concomitant]
     Dosage: 145 UNK, QD
     Route: 048
  6. SKELAXIN                           /00611501/ [Concomitant]
     Dosage: 800 UNK, QD
     Route: 048
  7. MOTRIN [Concomitant]
     Dosage: UNK, QD
     Route: 048

REACTIONS (18)
  - Lymphoma [Unknown]
  - Dysgeusia [Recovered/Resolved]
  - Pyrexia [Recovered/Resolved]
  - Flushing [Unknown]
  - Pain [Unknown]
  - Urticaria [Recovered/Resolved]
  - Rash papular [Unknown]
  - Diarrhoea [Not Recovered/Not Resolved]
  - Pruritus generalised [Not Recovered/Not Resolved]
  - Hyperhidrosis [Not Recovered/Not Resolved]
  - Chills [Unknown]
  - Injection site erythema [Not Recovered/Not Resolved]
  - Injection site pruritus [Not Recovered/Not Resolved]
  - Injection site reaction [Not Recovered/Not Resolved]
  - Injection site papule [Unknown]
  - Fungal infection [Unknown]
  - Injection site rash [Unknown]
  - Injection site urticaria [Unknown]
